FAERS Safety Report 14426130 (Version 2)
Quarter: 2018Q3

REPORT INFORMATION
  Report Type: Spontaneous
  Country: US (occurrence: US)
  Receive Date: 20180123
  Receipt Date: 20180913
  Transmission Date: 20181010
  Serious: Yes (Hospitalization, Other)
  Sender: FDA-Public Use
  Company Number: US-PFIZER INC-2018024443

PATIENT
  Age: 48 Year
  Sex: Female
  Weight: 92.99 kg

DRUGS (2)
  1. CHANTIX [Suspect]
     Active Substance: VARENICLINE TARTRATE
     Indication: SMOKING CESSATION THERAPY
     Dosage: UNK, ^LOW DOSE FOR 2?3 DAYS^
     Route: 048
  2. CHANTIX [Suspect]
     Active Substance: VARENICLINE TARTRATE
     Dosage: UNK, ^HIGHER DOSE OR 2 PILLS PER DAY^
     Route: 048

REACTIONS (5)
  - Nerve compression [Unknown]
  - Tobacco user [Recovered/Resolved]
  - Sepsis [Unknown]
  - Malaise [Unknown]
  - Nephrolithiasis [Not Recovered/Not Resolved]

NARRATIVE: CASE EVENT DATE: 201505
